FAERS Safety Report 10897329 (Version 1)
Quarter: 2015Q1

REPORT INFORMATION
  Report Type: Spontaneous
  Country: US (occurrence: None)
  Receive Date: 20150302
  Receipt Date: 20150302
  Transmission Date: 20150721
  Serious: No
  Sender: FDA-Public Use
  Company Number: None

PATIENT
  Age: 53 Year
  Sex: Female
  Weight: 68 kg

DRUGS (5)
  1. NOLVADEX [Concomitant]
     Active Substance: TAMOXIFEN CITRATE
  2. TAXOL [Suspect]
     Active Substance: PACLITAXEL
     Indication: BREAST CANCER
     Dosage: EVERY WEEK, INTO A VEIN
  3. LACTULOSE. [Concomitant]
     Active Substance: LACTULOSE
  4. ADRIAMYCIN [Suspect]
     Active Substance: DOXORUBICIN HYDROCHLORIDE
     Indication: BREAST CANCER STAGE III
     Dosage: EVERY 21 DAYS, INTO A VEIN
     Dates: start: 20131202
  5. MENOPACE [Concomitant]

REACTIONS (8)
  - Pain [None]
  - Alopecia [None]
  - Pyrexia [None]
  - Hot flush [None]
  - Nail disorder [None]
  - Nail discolouration [None]
  - Dysstasia [None]
  - Bone pain [None]

NARRATIVE: CASE EVENT DATE: 20140102
